FAERS Safety Report 8450318-0 (Version None)
Quarter: 2012Q2

REPORT INFORMATION
  Report Type: 
  Country: None (occurrence: None)
  Receive Date: 20120620
  Receipt Date: 20120611
  Transmission Date: 20120825
  Serious: Yes (Hospitalization, Other)
  Sender: FDA-Public Use
  Company Number: GB-MILLENNIUM PHARMACEUTICALS, INC.-2010-02611

PATIENT

DRUGS (11)
  1. FLUCONAZOLE [Concomitant]
     Indication: PROPHYLAXIS
     Dosage: 50 MG, UNK
  2. METFORMIN HCL [Concomitant]
     Indication: DIABETES MELLITUS
     Dosage: 2550 MG, UNK
  3. FUROSEMIDE [Concomitant]
     Indication: OEDEMA
     Dosage: 40 MG, UNK
  4. FENTANYL [Concomitant]
     Indication: PAIN
     Dosage: 25 UG, UNK
     Route: 062
  5. VELCADE [Suspect]
     Dosage: 1.3 MG, UNK
     Route: 042
     Dates: start: 20100329, end: 20100329
  6. ACYCLOVIR [Concomitant]
     Indication: ANTIVIRAL PROPHYLAXIS
     Dosage: 800 MG, UNK
  7. PIOGLITAZONE [Concomitant]
     Indication: DIABETES MELLITUS
     Dosage: 30 MG, UNK
  8. VELCADE [Suspect]
     Indication: MULTIPLE MYELOMA
     Dosage: 2.5 MG, UNK
     Route: 042
     Dates: start: 20100105
  9. DEXAMETHASONE SODIUM POSPHATE [Suspect]
     Indication: MULTIPLE MYELOMA
     Dosage: 160 MG, UNK
     Route: 048
     Dates: start: 20100105, end: 20100226
  10. LANSOPRAZOLE [Concomitant]
     Indication: PROPHYLAXIS
     Dosage: 30 MG, UNK
  11. GLIMEPIRIDE [Concomitant]
     Indication: DIABETES MELLITUS
     Dosage: 4 MG, UNK

REACTIONS (4)
  - PULMONARY EMBOLISM [None]
  - DIARRHOEA [None]
  - LOWER RESPIRATORY TRACT INFECTION [None]
  - ELECTROLYTE IMBALANCE [None]
